FAERS Safety Report 4608950-8 (Version None)
Quarter: 2005Q1

REPORT INFORMATION
  Report Type: 
  Country: None (occurrence: None)
  Receive Date: 20050311
  Receipt Date: 20050225
  Transmission Date: 20050727
  Serious: Yes (Hospitalization, Other)
  Sender: FDA-Public Use
  Company Number: 2000-BP-00162

PATIENT
  Age: 41 Year
  Sex: Female
  Weight: 70 kg

DRUGS (6)
  1. VIRAMUNE [Suspect]
     Indication: HIV INFECTION
     Dosage: 400 MG (200 MG, BID), PO
     Route: 048
     Dates: start: 19990916
  2. EMTRICITABINE (BLIND) [Concomitant]
  3. LAMIVUDINE (BLIND) [Concomitant]
  4. STAVUDINE [Concomitant]
  5. RAMIPRIL [Concomitant]
  6. ACETAMINOPHEN [Concomitant]

REACTIONS (28)
  - ABDOMINAL PAIN UPPER [None]
  - ABDOMINAL TENDERNESS [None]
  - BLOOD BICARBONATE DECREASED [None]
  - BLOOD PRESSURE SYSTOLIC INCREASED [None]
  - CONFUSIONAL STATE [None]
  - CSF TEST ABNORMAL [None]
  - CSF WHITE BLOOD CELL COUNT POSITIVE [None]
  - DEEP VEIN THROMBOSIS [None]
  - DEMENTIA [None]
  - DIZZINESS EXERTIONAL [None]
  - DYSPNOEA [None]
  - EOSINOPHIL COUNT DECREASED [None]
  - GASTRITIS [None]
  - HEADACHE [None]
  - HEPATOTOXICITY [None]
  - HYPERGLYCAEMIA [None]
  - HYPOKINESIA [None]
  - LETHARGY [None]
  - MALAISE [None]
  - NERVOUS SYSTEM DISORDER [None]
  - PULMONARY EMBOLISM [None]
  - TACHYCARDIA [None]
  - TACHYPNOEA [None]
  - VITAMIN B1 DEFICIENCY [None]
  - VOMITING [None]
  - WEIGHT DECREASED [None]
  - WERNICKE'S ENCEPHALOPATHY [None]
  - WHITE BLOOD CELL COUNT DECREASED [None]
